FAERS Safety Report 13064392 (Version 5)
Quarter: 2020Q3

REPORT INFORMATION
  Report Type: Spontaneous
  Country: US (occurrence: US)
  Receive Date: 20161227
  Receipt Date: 20200910
  Transmission Date: 20201102
  Serious: Yes (Hospitalization, Disabling)
  Sender: FDA-Public Use
  Company Number: US-JNJFOC-20161220156

PATIENT
  Age: 40 Year
  Sex: Female

DRUGS (2)
  1. INVOKANA [Suspect]
     Active Substance: CANAGLIFLOZIN
     Route: 048
     Dates: start: 2015, end: 201512
  2. INVOKANA [Suspect]
     Active Substance: CANAGLIFLOZIN
     Indication: TYPE 2 DIABETES MELLITUS
     Route: 048
     Dates: start: 20141229, end: 20151020

REACTIONS (3)
  - Cellulitis [Unknown]
  - Osteomyelitis [Unknown]
  - Leg amputation [Unknown]

NARRATIVE: CASE EVENT DATE: 201510
